FAERS Safety Report 9802804 (Version 1)
Quarter: 2014Q1

REPORT INFORMATION
  Report Type: Spontaneous
  Country: US (occurrence: None)
  Receive Date: 20140106
  Receipt Date: 20140106
  Transmission Date: 20141002
  Serious: Yes (Other)
  Sender: FDA-Public Use
  Company Number: None

PATIENT
  Age: 46 Year
  Sex: Male
  Weight: 156.49 kg

DRUGS (1)
  1. MINOCYCLINE 100 MG [Suspect]
     Indication: FOLLICULITIS
     Dosage: 1 PILL  TWICE DAILY
     Dates: start: 20100101, end: 20140103

REACTIONS (1)
  - Skin discolouration [None]
